FAERS Safety Report 5772031-0 (Version None)
Quarter: 2008Q2

REPORT INFORMATION
  Report Type: 
  Country: None (occurrence: None)
  Receive Date: 20080601
  Receipt Date: 20080304
  Transmission Date: 20081010
  Serious: No
  Sender: FDA-Public Use
  Company Number: US200803000942

PATIENT
  Age: 60 Year
  Sex: Male
  Weight: 133.8 kg

DRUGS (12)
  1. BYETTA [Suspect]
     Indication: TYPE 2 DIABETES MELLITUS
     Dosage: 5 UG, 2/D, SUBCUTANEOUS
     Route: 058
     Dates: start: 20071201, end: 20080101
  2. BYETTA [Suspect]
     Indication: TYPE 2 DIABETES MELLITUS
     Dosage: 10 UG, 2/D, SUBCUTANEOUS
     Route: 058
     Dates: start: 20080101
  3. METFORMIN HCL [Concomitant]
  4. LISINOPRIL /USA/ (LISINOPRIL) [Concomitant]
  5. ASPIRIN [Concomitant]
  6. DIAZEPAM [Concomitant]
  7. NABUMETONE [Concomitant]
  8. SIMVASTATIN [Concomitant]
  9. LIDODERM [Concomitant]
  10. HYDROCODONE (HYDROCODONE) [Concomitant]
  11. CELEBREX [Concomitant]
  12. TIZANIDINE HCL [Concomitant]

REACTIONS (3)
  - DRUG EFFECT DECREASED [None]
  - VISION BLURRED [None]
  - WEIGHT DECREASED [None]
